FAERS Safety Report 24637952 (Version 1)
Quarter: 2024Q4

REPORT INFORMATION
  Report Type: Spontaneous
  Country: US (occurrence: US)
  Receive Date: 20241119
  Receipt Date: 20241119
  Transmission Date: 20250114
  Serious: No
  Sender: SEPTODONT
  Company Number: US-SEPTODONT-2024018672

PATIENT
  Sex: Female
  Weight: 93.8 kg

DRUGS (2)
  1. SEPTOCAINE [Suspect]
     Active Substance: ARTICAINE HYDROCHLORIDE\EPINEPHRINE BITARTRATE
     Indication: Dental local anaesthesia
     Route: 004
     Dates: start: 20240508, end: 20240508
  2. BENZOCAINE [Suspect]
     Active Substance: BENZOCAINE
     Indication: Dental local anaesthesia
     Route: 065
     Dates: start: 20240508, end: 20240508

REACTIONS (1)
  - Palpitations [Not Recovered/Not Resolved]

NARRATIVE: CASE EVENT DATE: 20240501
